FAERS Safety Report 7818701-1 (Version None)
Quarter: 2011Q4

REPORT INFORMATION
  Report Type: 
  Country: None (occurrence: None)
  Receive Date: 20111018
  Receipt Date: 20111011
  Transmission Date: 20120403
  Serious: No
  Sender: FDA-Public Use
  Company Number: US-BIOGENIDEC-2011BI039037

PATIENT
  Sex: Female

DRUGS (6)
  1. AVONEX [Suspect]
     Route: 030
     Dates: start: 20110502
  2. AMANTADINE HCL [Concomitant]
     Indication: FATIGUE
     Route: 048
  3. AVONEX [Suspect]
     Indication: MULTIPLE SCLEROSIS
     Route: 030
     Dates: start: 20071002, end: 20080315
  4. ANTIVERT [Concomitant]
     Indication: VERTIGO
     Route: 048
  5. AVONEX [Suspect]
     Route: 030
     Dates: start: 20090201, end: 20100401
  6. AVONEX [Suspect]
     Route: 030
     Dates: start: 20090313

REACTIONS (4)
  - VERTIGO [None]
  - INFLUENZA LIKE ILLNESS [None]
  - RELAPSING-REMITTING MULTIPLE SCLEROSIS [None]
  - MULTIPLE SCLEROSIS RELAPSE [None]
